FAERS Safety Report 17235441 (Version 1)
Quarter: 2020Q1

REPORT INFORMATION
  Report Type: Spontaneous
  Country: US (occurrence: US)
  Receive Date: 20200106
  Receipt Date: 20200106
  Transmission Date: 20200409
  Serious: Yes (Other)
  Sender: FDA-Public Use
  Company Number: US-TEVA-2020-US-1163171

PATIENT
  Age: 60 Year
  Sex: Female

DRUGS (3)
  1. 5-FLUOROURACIL [Suspect]
     Active Substance: FLUOROURACIL
     Indication: SQUAMOUS CELL CARCINOMA
     Dosage: FLUOROURACIL CHEMOWRAP WAS USED.
     Route: 061
  2. ACITRETIN. [Concomitant]
     Active Substance: ACITRETIN
     Indication: SQUAMOUS CELL CARCINOMA
     Route: 065
  3. 5- FLUOROURACIL [Concomitant]
     Active Substance: FLUOROURACIL
     Indication: SQUAMOUS CELL CARCINOMA
     Dosage: 0.1-0.5 MG/NODULE
     Route: 026

REACTIONS (4)
  - Pain in extremity [Unknown]
  - Oedema peripheral [Unknown]
  - Erythema [Unknown]
  - Infected skin ulcer [Recovered/Resolved]
